FAERS Safety Report 12165905 (Version 3)
Quarter: 2016Q3

REPORT INFORMATION
  Report Type: Spontaneous
  Country: FR (occurrence: FR)
  Receive Date: 20160309
  Receipt Date: 20160819
  Transmission Date: 20161109
  Serious: Yes (Hospitalization, Congenital Anomaly)
  Sender: FDA-Public Use
  Company Number: FR-ABBVIE-15P-056-1486737-00

PATIENT
  Sex: Male

DRUGS (1)
  1. DEPAKINE [Suspect]
     Active Substance: VALPROATE SODIUM
     Indication: MATERNAL EXPOSURE TIMING UNSPECIFIED
     Route: 064

REACTIONS (13)
  - Hand fracture [Unknown]
  - Hypermobility syndrome [Not Recovered/Not Resolved]
  - Fall [Unknown]
  - Respiratory disorder [Not Recovered/Not Resolved]
  - Skin atrophy [Not Recovered/Not Resolved]
  - Primary ciliary dyskinesia [Not Recovered/Not Resolved]
  - Wrist fracture [Unknown]
  - Congenital anomaly [Unknown]
  - Scoliosis [Not Recovered/Not Resolved]
  - Attention deficit/hyperactivity disorder [Not Recovered/Not Resolved]
  - Foetal exposure during pregnancy [Unknown]
  - Learning disorder [Unknown]
  - Autism [Not Recovered/Not Resolved]

NARRATIVE: CASE EVENT DATE: 199909
